FAERS Safety Report 4864236-8 (Version None)
Quarter: 2005Q4

REPORT INFORMATION
  Report Type: 
  Country: None (occurrence: None)
  Receive Date: 20051222
  Receipt Date: 20051216
  Transmission Date: 20060501
  Serious: Yes (Hospitalization)
  Sender: FDA-Public Use
  Company Number: 2005AP06512

PATIENT
  Age: 59 Year
  Sex: Female

DRUGS (5)
  1. DIPRIVAN [Suspect]
     Indication: GENERAL ANAESTHESIA
     Dosage: TARGET BLOOD CONCENTRATION 2.7-3.0 UG/ML
     Route: 042
     Dates: start: 20051214, end: 20051214
  2. CEFMETAZON [Suspect]
     Route: 042
     Dates: start: 20051214, end: 20051214
  3. MUSCULAX [Concomitant]
     Route: 042
     Dates: start: 20051214, end: 20051214
  4. FENTANYL CITRATE [Concomitant]
     Route: 042
     Dates: start: 20051214, end: 20051214
  5. ATROPINE SULPHATE [Concomitant]
     Route: 042
     Dates: start: 20051214, end: 20051214

REACTIONS (1)
  - HEPATITIS ACUTE [None]
